FAERS Safety Report 13263635 (Version 1)
Quarter: 2017Q1

REPORT INFORMATION
  Report Type: Spontaneous
  Country: US (occurrence: US)
  Receive Date: 20170223
  Receipt Date: 20170223
  Transmission Date: 20170428
  Serious: No
  Sender: FDA-Public Use
  Company Number: US-BAYER-2017-035996

PATIENT
  Sex: Female

DRUGS (2)
  1. CLARITIN [Suspect]
     Active Substance: LORATADINE
     Indication: HYPERSENSITIVITY
     Route: 048
     Dates: start: 20170220, end: 20170221
  2. CLARITIN [Suspect]
     Active Substance: LORATADINE
     Indication: NASOPHARYNGITIS

REACTIONS (2)
  - Diarrhoea [Not Recovered/Not Resolved]
  - Product use issue [Unknown]

NARRATIVE: CASE EVENT DATE: 20170220
